FAERS Safety Report 16334669 (Version 2)
Quarter: 2019Q2

REPORT INFORMATION
  Report Type: Report from Study
  Country: US (occurrence: US)
  Receive Date: 20190520
  Receipt Date: 20190529
  Transmission Date: 20190711
  Serious: Yes (Hospitalization)
  Sender: FDA-Public Use
  Company Number: US-ACTELION-A-US2018-174402

PATIENT
  Age: 55 Year
  Sex: Male
  Weight: 120.18 kg

DRUGS (7)
  1. ORENITRAM [Suspect]
     Active Substance: TREPROSTINIL
     Indication: PRODUCT USED FOR UNKNOWN INDICATION
     Dosage: 19.625 MG, TID
     Route: 065
  2. OPSUMIT [Suspect]
     Active Substance: MACITENTAN
     Indication: PULMONARY ARTERIAL HYPERTENSION
     Dosage: 10 MG, QD
     Route: 048
  3. REMODULIN [Suspect]
     Active Substance: TREPROSTINIL
     Dosage: UNK
     Route: 042
  4. XARELTO [Concomitant]
     Active Substance: RIVAROXABAN
  5. REMODULIN [Suspect]
     Active Substance: TREPROSTINIL
     Indication: PRODUCT USED FOR UNKNOWN INDICATION
     Route: 042
  6. SILDENAFIL CITRATE. [Concomitant]
     Active Substance: SILDENAFIL CITRATE
  7. ORENITRAM [Suspect]
     Active Substance: TREPROSTINIL
     Dosage: 17 MG, TID
     Route: 065

REACTIONS (16)
  - Nausea [Recovered/Resolved]
  - Headache [Recovered/Resolved]
  - Therapy non-responder [Unknown]
  - Chest pain [Unknown]
  - Malaise [Recovered/Resolved]
  - Dyspnoea [Unknown]
  - Vomiting [Unknown]
  - Abdominal pain upper [Unknown]
  - Hypotension [Unknown]
  - Therapy change [Unknown]
  - Diarrhoea [Unknown]
  - Blood test abnormal [Unknown]
  - Syncope [Unknown]
  - Ageusia [Recovering/Resolving]
  - Unevaluable event [Unknown]
  - Blood disorder [Unknown]

NARRATIVE: CASE EVENT DATE: 20190506
